FAERS Safety Report 6843069-7 (Version None)
Quarter: 2010Q3

REPORT INFORMATION
  Report Type: 
  Country: None (occurrence: None)
  Receive Date: 20100712
  Receipt Date: 20100625
  Transmission Date: 20110219
  Serious: Yes (Hospitalization)
  Sender: FDA-Public Use
  Company Number: 2010002547

PATIENT
  Sex: Female

DRUGS (8)
  1. TARCEVA [Suspect]
     Indication: NON-SMALL CELL LUNG CANCER
     Dosage: 100 MG, QD, ORAL
     Route: 048
     Dates: start: 20100617
  2. DECADRON [Concomitant]
  3. ZOFRAN [Concomitant]
  4. OMEPRAZOLE [Concomitant]
  5. ONCOLOGY MOUTHWASH [Concomitant]
  6. VICODIN [Concomitant]
  7. VALIUM [Concomitant]
  8. ACETAMINOPHEN [Concomitant]

REACTIONS (11)
  - AGITATION [None]
  - DELIRIUM [None]
  - INSOMNIA [None]
  - MALIGNANT NEOPLASM PROGRESSION [None]
  - MENTAL STATUS CHANGES [None]
  - METASTASES TO BONE [None]
  - METASTASES TO CENTRAL NERVOUS SYSTEM [None]
  - METASTASES TO LIVER [None]
  - METASTASES TO LYMPH NODES [None]
  - PSYCHOMOTOR HYPERACTIVITY [None]
  - URINARY TRACT INFECTION [None]
